FAERS Safety Report 9391135 (Version 2)
Quarter: 2013Q3

REPORT INFORMATION
  Report Type: Spontaneous
  Country: US (occurrence: US)
  Receive Date: 20130709
  Receipt Date: 20130716
  Transmission Date: 20140515
  Serious: Yes (Hospitalization)
  Sender: FDA-Public Use
  Company Number: US-UCBSA-091030

PATIENT
  Sex: Male

DRUGS (3)
  1. CIMZIA [Suspect]
     Indication: RHEUMATOID ARTHRITIS
     Dates: start: 201210, end: 20130611
  2. PREDNISONE [Concomitant]
     Dosage: UNKNOWN DOSE DAILY
     Dates: end: 2013
  3. PREDNISONE [Concomitant]
     Dosage: DOSE INCREASED
     Dates: start: 2013

REACTIONS (2)
  - Interstitial lung disease [Unknown]
  - Nasal congestion [Unknown]
